FAERS Safety Report 23991644 (Version 1)
Quarter: 2024Q2

REPORT INFORMATION
  Report Type: Other
  Country: CH (occurrence: CH)
  Receive Date: 20240619
  Receipt Date: 20240619
  Transmission Date: 20240716
  Serious: Yes (Hospitalization)
  Sender: FDA-Public Use
  Company Number: CH-OrBion Pharmaceuticals Private Limited-2158319

PATIENT
  Age: 17 Year
  Sex: Female

DRUGS (4)
  1. VENLAFAXINE HYDROCHLORIDE [Suspect]
     Active Substance: VENLAFAXINE HYDROCHLORIDE
     Indication: Overdose
     Route: 048
  2. OXYCODONE. [Concomitant]
     Active Substance: OXYCODONE HYDROCHLORIDE
     Route: 065
  3. CAFFEINE\MECLIZINE MONOHYDROCHLORIDE\PYRIDOXINE HYDROCHLORIDE [Concomitant]
     Active Substance: CAFFEINE\MECLIZINE MONOHYDROCHLORIDE\PYRIDOXINE HYDROCHLORIDE
     Route: 065
  4. ZOLMITRIPTAN [Concomitant]
     Active Substance: ZOLMITRIPTAN
     Route: 065

REACTIONS (19)
  - Circulatory collapse [Recovered/Resolved]
  - Overdose [Unknown]
  - Toxicity to various agents [Unknown]
  - Respiratory failure [Recovered/Resolved]
  - Antidepressant drug level above therapeutic [Unknown]
  - C-reactive protein increased [Recovered/Resolved]
  - Pleural effusion [Recovered/Resolved]
  - Serotonin syndrome [Recovered/Resolved]
  - Foreign body in gastrointestinal tract [Unknown]
  - Acute kidney injury [Recovered/Resolved]
  - Acute hepatic failure [Recovered/Resolved]
  - Lactic acidosis [Recovered/Resolved]
  - Metabolic acidosis [Recovered/Resolved]
  - Status epilepticus [Recovered/Resolved]
  - Gastritis haemorrhagic [Recovered/Resolved]
  - Disseminated intravascular coagulation [Recovered/Resolved]
  - Seizure [Recovered/Resolved]
  - Haemodynamic instability [Recovered/Resolved]
  - Somnolence [Recovered/Resolved]
